FAERS Safety Report 20336424 (Version 1)
Quarter: 2022Q1

REPORT INFORMATION
  Report Type: Spontaneous
  Country: US (occurrence: None)
  Receive Date: 20220114
  Receipt Date: 20220114
  Transmission Date: 20220423
  Serious: Yes (Other)
  Sender: FDA-Public Use
  Company Number: None

PATIENT
  Age: 33 Year
  Sex: Female
  Weight: 94.3 kg

DRUGS (4)
  1. BAMLANIVIMAB [Suspect]
     Active Substance: BAMLANIVIMAB
     Indication: COVID-19
     Dosage: OTHER FREQUENCY : ONE TIME;?
     Route: 041
     Dates: start: 20211230, end: 20211230
  2. ETESEVIMAB [Suspect]
     Active Substance: ETESEVIMAB
     Indication: COVID-19
     Dosage: OTHER FREQUENCY : ONE TIME;?
     Route: 041
     Dates: start: 20211230, end: 20211230
  3. Benadryl 50mg IV [Concomitant]
     Dates: start: 20211230, end: 20211230
  4. Solu-Medrol 125mg IV [Concomitant]
     Dates: start: 20211230, end: 20211230

REACTIONS (4)
  - Infusion related reaction [None]
  - Feeling hot [None]
  - Dizziness [None]
  - Erythema [None]

NARRATIVE: CASE EVENT DATE: 20211230
